FAERS Safety Report 6336800-0 (Version None)
Quarter: 2009Q3

REPORT INFORMATION
  Report Type: 
  Country: None (occurrence: None)
  Receive Date: 20090831
  Receipt Date: 20090831
  Transmission Date: 20100115
  Serious: Yes (Hospitalization)
  Sender: FDA-Public Use
  Company Number: None

PATIENT
  Age: 26 Year
  Sex: Female
  Weight: 63.5036 kg

DRUGS (5)
  1. PROCHLORPERAZINE [Suspect]
     Indication: NAUSEA
     Dosage: 10 MG EVERY 4-6 HOUS PO DAYS
     Route: 048
     Dates: start: 20090824, end: 20090827
  2. VICODIN [Concomitant]
  3. MOTRIN [Concomitant]
  4. CITALOPRAM HYDROBROMIDE [Concomitant]
  5. YAZ [Concomitant]

REACTIONS (6)
  - ANXIETY [None]
  - DEHYDRATION [None]
  - JOINT DISLOCATION [None]
  - MUSCLE SPASMS [None]
  - PAIN IN JAW [None]
  - TREMOR [None]
